FAERS Safety Report 4693992-7 (Version None)
Quarter: 2005Q2

REPORT INFORMATION
  Report Type: 
  Country: None (occurrence: None)
  Receive Date: 20050616
  Receipt Date: 20050606
  Transmission Date: 20051028
  Serious: Yes (Other)
  Sender: FDA-Public Use
  Company Number: 2005062932

PATIENT
  Age: 85 Year
  Sex: Female
  Weight: 77.1115 kg

DRUGS (6)
  1. BEXTRA [Suspect]
     Indication: OSTEOARTHRITIS
     Dosage: 10 MG (10 MG, 1 IN 1 D), ORAL
     Route: 048
  2. TYLENOL [Concomitant]
  3. MONOPRIL [Concomitant]
  4. HYDROCHLOROTHIAZIDE WITH TRIAMTERENE (HYDROCHLOROTHIAZIDE, TRIAMTERENE [Concomitant]
  5. CALCIUM (CALCIUM) [Concomitant]
  6. NEXIUM [Concomitant]

REACTIONS (4)
  - NEOPLASM MALIGNANT [None]
  - PHOTOSENSITIVITY REACTION [None]
  - SKIN CHAPPED [None]
  - SKIN EXFOLIATION [None]
